FAERS Safety Report 9006573 (Version 1)
Quarter: 2013Q1

REPORT INFORMATION
  Report Type: Spontaneous
  Country: CN (occurrence: CN)
  Receive Date: 20130110
  Receipt Date: 20130110
  Transmission Date: 20140127
  Serious: Yes (Hospitalization)
  Sender: FDA-Public Use
  Company Number: CN-SANOFI-AVENTIS-2013SA000940

PATIENT
  Age: 68 Year
  Sex: Male
  Weight: 76 kg

DRUGS (9)
  1. LANTUS SOLOSTAR [Suspect]
     Indication: DIABETES MELLITUS
     Dosage: STRENGTH: 3ML:300 IU DOSE:21 UNIT(S)
     Route: 058
     Dates: start: 2010
  2. LANTUS SOLOSTAR [Suspect]
     Indication: DIABETES MELLITUS
     Dosage: STRENGTH: 3ML:300 IU DOSE:21 UNIT(S)
     Route: 058
  3. SOLOSTAR [Suspect]
     Indication: DEVICE THERAPY
     Dates: start: 2010
  4. SOLOSTAR [Suspect]
     Indication: DEVICE THERAPY
  5. AMARYL [Suspect]
     Indication: DIABETES MELLITUS
     Dosage: STRENGTH: 2MG
     Route: 048
     Dates: start: 2010
  6. AMARYL [Suspect]
     Indication: DIABETES MELLITUS
     Dosage: STRENGTH: 2MG
     Route: 048
  7. ADALAT [Concomitant]
     Indication: HYPERTENSION
     Route: 048
  8. AMLODIPINE [Concomitant]
     Indication: HYPERTENSION
     Route: 048
  9. HUMULIN [Concomitant]
     Indication: DIABETES MELLITUS
     Dosage: 23 U IN THE MORNING AND 13 U IN THE EVENING
     Route: 058

REACTIONS (3)
  - Cholecystitis [Recovered/Resolved]
  - Pyrexia [Recovered/Resolved]
  - Blood glucose increased [Not Recovered/Not Resolved]
